FAERS Safety Report 4607791-5 (Version None)
Quarter: 2005Q1

REPORT INFORMATION
  Report Type: 
  Country: None (occurrence: None)
  Receive Date: 20050309
  Receipt Date: 20050301
  Transmission Date: 20050727
  Serious: Yes (Other)
  Sender: FDA-Public Use
  Company Number: 2004049437

PATIENT
  Age: 43 Year
  Sex: Male
  Weight: 99 kg

DRUGS (2)
  1. ZITHROMAX [Suspect]
     Indication: PHARYNGITIS
     Dosage: 250 MG (250 MG, 1 IN 1 D), ORAL
     Route: 048
     Dates: start: 20040512, end: 20040514
  2. ZITHROMAX [Suspect]
     Indication: SINUSITIS
     Dosage: 250 MG (250 MG, 1 IN 1 D), ORAL
     Route: 048
     Dates: start: 20040512, end: 20040514

REACTIONS (4)
  - AGEUSIA [None]
  - ANOSMIA [None]
  - IMPAIRED WORK ABILITY [None]
  - LOSS OF EMPLOYMENT [None]
